FAERS Safety Report 24918869 (Version 2)
Quarter: 2025Q1

REPORT INFORMATION
  Report Type: Spontaneous
  Country: US (occurrence: US)
  Receive Date: 20250204
  Receipt Date: 20250325
  Transmission Date: 20250409
  Serious: Yes (Death, Hospitalization, Other)
  Sender: UPSHER SMITH LABORATORIES
  Company Number: US-UPSHER-SMITH LABORATORIES, LLC-20250100337

PATIENT
  Sex: Female

DRUGS (2)
  1. VIGADRONE [Suspect]
     Active Substance: VIGABATRIN
     Indication: Infantile spasms
     Dates: start: 20210130
  2. VIGADRONE [Suspect]
     Active Substance: VIGABATRIN

REACTIONS (2)
  - Death [Fatal]
  - Illness [None]
